FAERS Safety Report 8337654-3 (Version None)
Quarter: 2012Q2

REPORT INFORMATION
  Report Type: 
  Country: None (occurrence: None)
  Receive Date: 20120504
  Receipt Date: 20120504
  Transmission Date: 20120825
  Serious: Yes (Hospitalization)
  Sender: FDA-Public Use
  Company Number: None

PATIENT
  Age: 41 Year
  Sex: Female
  Weight: 102 kg

DRUGS (1)
  1. BACTRIM DS [Suspect]
     Indication: ABSCESS LIMB
     Dosage: |FREQ: BID||ROUTE: ORAL|
     Route: 048

REACTIONS (1)
  - STEVENS-JOHNSON SYNDROME [None]
